FAERS Safety Report 7540385-0 (Version None)
Quarter: 2011Q2

REPORT INFORMATION
  Report Type: 
  Country: None (occurrence: None)
  Receive Date: 20110610
  Receipt Date: 20110531
  Transmission Date: 20111010
  Serious: Yes (Hospitalization, Other)
  Sender: FDA-Public Use
  Company Number: US-MERCK-1101USA01054

PATIENT
  Age: 56 Year
  Sex: Female
  Weight: 55 kg

DRUGS (7)
  1. FOSAMAX [Suspect]
     Indication: OSTEOPENIA
     Route: 048
  2. FOSAMAX [Suspect]
     Route: 065
     Dates: start: 20080208
  3. FOSAMAX [Suspect]
     Route: 048
     Dates: start: 19990101
  4. FOSAMAX [Suspect]
     Indication: OSTEOPOROSIS
     Route: 048
  5. FOSAMAX [Suspect]
     Route: 065
     Dates: start: 20080208
  6. FOSAMAX [Suspect]
     Route: 048
  7. FOSAMAX [Suspect]
     Route: 048
     Dates: start: 19990101

REACTIONS (35)
  - OSTEONECROSIS OF JAW [None]
  - GASTROENTERITIS ESCHERICHIA COLI [None]
  - CYST [None]
  - HEADACHE [None]
  - LUMBAR SPINAL STENOSIS [None]
  - MYOFASCIAL PAIN SYNDROME [None]
  - PERIPHERAL EMBOLISM [None]
  - CARPAL TUNNEL SYNDROME [None]
  - DEEP VEIN THROMBOSIS [None]
  - FIBROMYALGIA [None]
  - VAGINAL LESION [None]
  - TOOTH INFECTION [None]
  - OVARIAN CYST [None]
  - INTERVERTEBRAL DISC DEGENERATION [None]
  - INTERVERTEBRAL DISC DISPLACEMENT [None]
  - OSTEOMYELITIS [None]
  - MENISCUS LESION [None]
  - ARTHRALGIA [None]
  - HERNIA [None]
  - ARTHROPATHY [None]
  - ABDOMINAL PAIN LOWER [None]
  - POSTOPERATIVE FEVER [None]
  - BACK PAIN [None]
  - OSTEOCHONDROSIS [None]
  - FACET JOINT SYNDROME [None]
  - DEPRESSION [None]
  - MENTAL STATUS CHANGES [None]
  - ALVEOLAR OSTEITIS [None]
  - URINARY TRACT INFECTION [None]
  - ADVERSE DRUG REACTION [None]
  - OSTEOARTHRITIS [None]
  - HYPERTENSION [None]
  - SCIATICA [None]
  - RADICULOPATHY [None]
  - OVARIAN DISORDER [None]
